FAERS Safety Report 8602571-8 (Version None)
Quarter: 2012Q3

REPORT INFORMATION
  Report Type: 
  Country: None (occurrence: None)
  Receive Date: 20120817
  Receipt Date: 20120814
  Transmission Date: 20120928
  Serious: Yes (Other)
  Sender: FDA-Public Use
  Company Number: PHEH2012US015931

PATIENT

DRUGS (1)
  1. GILENYA [Suspect]
     Route: 048
     Dates: start: 20120809

REACTIONS (2)
  - HEART RATE INCREASED [None]
  - BLOOD PRESSURE DIASTOLIC INCREASED [None]
